FAERS Safety Report 18920168 (Version 5)
Quarter: 2021Q3

REPORT INFORMATION
  Report Type: Other
  Country: HR (occurrence: HR)
  Receive Date: 20210222
  Receipt Date: 20210814
  Transmission Date: 20211014
  Serious: Yes (Other)
  Sender: FDA-Public Use
  Company Number: HR-ROCHE-2770997

PATIENT
  Age: 66 Year
  Sex: Female

DRUGS (13)
  1. MAXITROL [Concomitant]
     Active Substance: DEXAMETHASONE\NEOMYCIN SULFATE\POLYMYXIN B SULFATE
     Dosage: 5X
     Dates: start: 20201214, end: 20201224
  2. PEMETREXED. [Concomitant]
     Active Substance: PEMETREXED
     Indication: NEOPLASM MALIGNANT
  3. MISAR (CROATIA) [Concomitant]
  4. DORETA [Concomitant]
     Active Substance: ACETAMINOPHEN\TRAMADOL HYDROCHLORIDE
     Indication: PROPHYLAXIS
  5. MAXITROL [Concomitant]
     Active Substance: DEXAMETHASONE\NEOMYCIN SULFATE\POLYMYXIN B SULFATE
     Dates: start: 20201214, end: 20201224
  6. MOXIFLOXACIN HYDROCHLORIDE. [Concomitant]
     Active Substance: MOXIFLOXACIN HYDROCHLORIDE
     Dosage: 3X
     Dates: start: 20210218, end: 20210222
  7. AZITHROMYCIN ANHYDROUS. [Concomitant]
     Active Substance: AZITHROMYCIN ANHYDROUS
     Dates: start: 20210104, end: 20210107
  8. GELCLAIR (CROATIA) [Concomitant]
     Dates: start: 20210412, end: 20210503
  9. BRIMICA [Concomitant]
     Active Substance: ACLIDINIUM BROMIDE\FORMOTEROL FUMARATE
     Route: 065
  10. MEDROL [Concomitant]
     Active Substance: METHYLPREDNISOLONE
     Dates: start: 20210104, end: 20210111
  11. TOBREX [Concomitant]
     Active Substance: TOBRAMYCIN
     Dosage: 2X
     Dates: start: 20210218, end: 20210222
  12. CISPLATINA [Concomitant]
     Active Substance: CISPLATIN
     Indication: NEOPLASM MALIGNANT
  13. ATEZOLIZUMAB. [Suspect]
     Active Substance: ATEZOLIZUMAB
     Indication: LUNG CANCER METASTATIC
     Dosage: NEXT DOSE: 11/JAN/2021, 01/FEB/2021 AND 01/MAR/2021?MOST RECENT DOSE:14/DEC/2020.
     Route: 041
     Dates: start: 20201124

REACTIONS (1)
  - Sialoadenitis [Recovered/Resolved]

NARRATIVE: CASE EVENT DATE: 20201221
